FAERS Safety Report 12492669 (Version 1)
Quarter: 2016Q2

REPORT INFORMATION
  Report Type: Spontaneous
  Country: US (occurrence: None)
  Receive Date: 20160622
  Receipt Date: 20160622
  Transmission Date: 20160815
  Serious: Yes (Hospitalization)
  Sender: FDA-Public Use
  Company Number: None

PATIENT
  Age: 56 Year
  Sex: Female

DRUGS (7)
  1. COLACE [Concomitant]
     Active Substance: DOCUSATE SODIUM
  2. IBUPROFEN. [Concomitant]
     Active Substance: IBUPROFEN
  3. ASPIRIN. [Concomitant]
     Active Substance: ASPIRIN
  4. IRON [Concomitant]
     Active Substance: IRON
  5. SENOKOT [Concomitant]
     Active Substance: SENNOSIDES
  6. VOTRIENT [Suspect]
     Active Substance: PAZOPANIB HYDROCHLORIDE
     Indication: MALIGNANT NEOPLASM OF UTERINE ADNEXA
     Route: 048
     Dates: start: 20160526, end: 20160607
  7. APAP [Concomitant]
     Active Substance: ACETAMINOPHEN

REACTIONS (4)
  - Disease complication [None]
  - Adverse drug reaction [None]
  - Neoplasm [None]
  - Gastrointestinal disorder [None]

NARRATIVE: CASE EVENT DATE: 20160607
